FAERS Safety Report 7799063-5 (Version None)
Quarter: 2011Q4

REPORT INFORMATION
  Report Type: 
  Country: None (occurrence: None)
  Receive Date: 20111006
  Receipt Date: 20110929
  Transmission Date: 20120403
  Serious: Yes (Death, Hospitalization)
  Sender: FDA-Public Use
  Company Number: US-AMGEN-USACT2011036691

PATIENT
  Age: 76 Year
  Sex: Female

DRUGS (23)
  1. AMIODARONE HCL [Concomitant]
     Dosage: 100 MG, QD
  2. DIGOXIN [Concomitant]
     Dosage: 125 MUG, UNK
  3. DIOVAN [Concomitant]
     Dosage: 160 MG, QD
  4. OMEPRAZOLE [Concomitant]
     Dosage: 20 MG, BID
  5. ADVAIR DISKUS 100/50 [Concomitant]
     Dosage: UNK UNK, BID
  6. ALLOPURINOL [Concomitant]
     Dosage: 200 MG, UNK
  7. ASPIRIN [Concomitant]
     Dosage: 325 MG, QD
  8. CITALOPRAM HYDROBROMIDE [Concomitant]
     Dosage: 10 MG, QD
  9. FUROSEMIDE [Concomitant]
     Dosage: 20 MG, QD
  10. GLIPIZIDE [Concomitant]
     Dosage: 5 MG, QD
  11. LIPITOR [Concomitant]
     Dosage: 40 MG, QD
  12. ACETAMINOPHEN [Concomitant]
     Dosage: 1000 MG, UNK
  13. BLINDED DARBEPOETIN ALFA [Suspect]
     Indication: CARDIAC FAILURE
     Dosage: UNK UNK, QMO
     Route: 058
     Dates: start: 20100810, end: 20110614
  14. LEVOFLOXACIN [Concomitant]
  15. NITROSTAT [Concomitant]
     Dosage: 0.4 MG, PRN
  16. ISOSORBIDE DINITRA [Concomitant]
     Dosage: 40 MG, TID
  17. MAGNESIUM OXIDE [Concomitant]
     Dosage: 400 MG, BID
  18. CALCIUM + VITAMIN D [Concomitant]
     Dosage: UNK UNK, QD
  19. SPIRIVA [Concomitant]
     Dosage: 18 MUG, QD
  20. VANCOMYCIN [Concomitant]
  21. DULCOLAX [Concomitant]
     Dosage: 5 MG, QD
  22. BLINDED PLACEBO [Suspect]
     Indication: CARDIAC FAILURE
     Dosage: UNK UNK, QMO
     Route: 058
     Dates: start: 20100810, end: 20110614
  23. METOPROLOL TARTRATE [Concomitant]
     Dosage: 100 MG, QD

REACTIONS (1)
  - COLITIS ISCHAEMIC [None]
